FAERS Safety Report 10211503 (Version 2)
Quarter: 2014Q2

REPORT INFORMATION
  Report Type: Spontaneous
  Country: US (occurrence: US)
  Receive Date: 20140602
  Receipt Date: 20140602
  Transmission Date: 20141212
  Serious: No
  Sender: FDA-Public Use
  Company Number: US-BAXTER-2011BH024344

PATIENT
  Sex: Male

DRUGS (7)
  1. STERILE WATER FOR IRRIGATION, USP [Suspect]
     Indication: SLEEP APNOEA SYNDROME
     Dates: start: 20110719, end: 20110723
  2. METFORMIN [Concomitant]
     Indication: DIABETES MELLITUS
     Route: 048
  3. OXYCODONE [Concomitant]
     Indication: PAIN
     Route: 048
  4. LISINOPRIL [Concomitant]
     Indication: PRODUCT USED FOR UNKNOWN INDICATION
     Route: 048
  5. METHOCARBAMOL [Concomitant]
     Indication: PRODUCT USED FOR UNKNOWN INDICATION
     Route: 048
  6. METRONIDAZOLE [Concomitant]
     Indication: PRODUCT USED FOR UNKNOWN INDICATION
     Route: 048
     Dates: start: 20110718, end: 20110722
  7. CIPROFLOXACIN [Concomitant]
     Indication: PRODUCT USED FOR UNKNOWN INDICATION
     Route: 048
     Dates: start: 20110718, end: 20110722

REACTIONS (4)
  - Dyspnoea [Not Recovered/Not Resolved]
  - Wrong drug administered [Unknown]
  - Dysgeusia [Not Recovered/Not Resolved]
  - Feeling abnormal [Unknown]
